FAERS Safety Report 5606163-4 (Version None)
Quarter: 2008Q1

REPORT INFORMATION
  Report Type: 
  Country: None (occurrence: None)
  Receive Date: 20080129
  Receipt Date: 20061214
  Transmission Date: 20080703
  Serious: No
  Sender: FDA-Public Use
  Company Number: A0631657A

PATIENT
  Sex: Female

DRUGS (2)
  1. WELLBUTRIN [Suspect]
     Indication: DRUG USE FOR UNKNOWN INDICATION
     Route: 065
     Dates: start: 20061101
  2. NUVARING [Concomitant]

REACTIONS (1)
  - MENSTRUAL DISORDER [None]
